FAERS Safety Report 6721394-8 (Version None)
Quarter: 2010Q2

REPORT INFORMATION
  Report Type: 
  Country: None (occurrence: None)
  Receive Date: 20100512
  Receipt Date: 20100503
  Transmission Date: 20101027
  Serious: Yes (Other)
  Sender: FDA-Public Use
  Company Number: FR-JNJFOC-20100407457

PATIENT
  Age: 62 Year
  Sex: Male

DRUGS (2)
  1. REOPRO [Suspect]
     Indication: ACUTE CORONARY SYNDROME
     Route: 040
  2. REOPRO [Suspect]
     Route: 042

REACTIONS (2)
  - ACCIDENTAL OVERDOSE [None]
  - PRODUCT LABEL CONFUSION [None]
